FAERS Safety Report 4574885-2 (Version None)
Quarter: 2005Q1

REPORT INFORMATION
  Report Type: 
  Country: None (occurrence: None)
  Receive Date: 20050208
  Receipt Date: 20040727
  Transmission Date: 20050727
  Serious: No
  Sender: FDA-Public Use
  Company Number: US-GLAXOSMITHKLINE-A0519920A

PATIENT
  Age: 61 Year
  Sex: Female

DRUGS (7)
  1. PAXIL CR [Suspect]
     Indication: DEPRESSION
     Dosage: 12.5MG PER DAY
     Route: 048
     Dates: start: 20040727
  2. NEURONTIN [Concomitant]
  3. COZAAR [Concomitant]
  4. ATENOLOL [Concomitant]
  5. LEVOXYL [Concomitant]
  6. ZOCOR [Concomitant]
  7. IBUPROFEN [Concomitant]

REACTIONS (1)
  - NEUROPATHY [None]
